FAERS Safety Report 7889585-0 (Version None)
Quarter: 2011Q4

REPORT INFORMATION
  Report Type: 
  Country: None (occurrence: None)
  Receive Date: 20111103
  Receipt Date: 20110426
  Transmission Date: 20120403
  Serious: No
  Sender: FDA-Public Use
  Company Number: US-BRISTOL-MYERS SQUIBB COMPANY-15706179

PATIENT

DRUGS (2)
  1. SENSORCAINE [Suspect]
     Route: 014
  2. KENALOG-40 [Suspect]
     Dosage: KENALOG-40 INJ VIAL
     Route: 014

REACTIONS (2)
  - FLUSHING [None]
  - RASH [None]
